FAERS Safety Report 6270948-4 (Version None)
Quarter: 2009Q3

REPORT INFORMATION
  Report Type: 
  Country: None (occurrence: None)
  Receive Date: 20090716
  Receipt Date: 20090710
  Transmission Date: 20100115
  Serious: Yes (Hospitalization)
  Sender: FDA-Public Use
  Company Number: US-ELI_LILLY_AND_COMPANY-US200904000574

PATIENT
  Sex: Female

DRUGS (3)
  1. FORTEO [Suspect]
  2. TOPROL-XL [Concomitant]
  3. COUMADIN [Concomitant]

REACTIONS (1)
  - ATRIAL FIBRILLATION [None]
